FAERS Safety Report 25461726 (Version 1)
Quarter: 2025Q2

REPORT INFORMATION
  Report Type: Spontaneous
  Country: CN (occurrence: CN)
  Receive Date: 20250620
  Receipt Date: 20250620
  Transmission Date: 20250716
  Serious: Yes (Life-Threatening, Other)
  Sender: OTSUKA
  Company Number: CN-MMM-Otsuka-F4WHNBMY

PATIENT
  Age: 70 Year
  Sex: Male
  Weight: 55 kg

DRUGS (1)
  1. TOLVAPTAN [Suspect]
     Active Substance: TOLVAPTAN
     Indication: Polyuria
     Dosage: 15 MG, QD (NASOGASTRIC FEEDING)
     Route: 045
     Dates: start: 20250530, end: 20250604

REACTIONS (1)
  - Blood sodium increased [Recovering/Resolving]

NARRATIVE: CASE EVENT DATE: 20250601
